FAERS Safety Report 9045956 (Version 1)
Quarter: 2013Q1

REPORT INFORMATION
  Report Type: Spontaneous
  Country: US (occurrence: US)
  Receive Date: 20130201
  Receipt Date: 20130201
  Transmission Date: 20140127
  Serious: No
  Sender: FDA-Public Use
  Company Number: US-ABBOTT-12P-163-1020129-00

PATIENT
  Age: 23 None
  Sex: Female
  Weight: 90.8 kg

DRUGS (1)
  1. HUMIRA [Suspect]
     Indication: HIDRADENITIS
     Dosage: LOADING DOSE
     Dates: start: 20121207

REACTIONS (5)
  - Erythema [Recovered/Resolved]
  - Feeling abnormal [Recovered/Resolved]
  - Rash [Not Recovered/Not Resolved]
  - Muscular weakness [Not Recovered/Not Resolved]
  - Off label use [Unknown]
